FAERS Safety Report 7280841 (Version 4)
Quarter: 2019Q3

REPORT INFORMATION
  Report Type: Spontaneous
  Country: FR (occurrence: FR)
  Receive Date: 20100217
  Receipt Date: 20190715
  Transmission Date: 20191005
  Serious: Yes (Hospitalization)
  Sender: FDA-Public Use
  Company Number: FR-JNJFOC-20100205353

PATIENT
  Age: 68 Year
  Sex: Female
  Weight: 120 kg

DRUGS (2)
  1. REMICADE [Suspect]
     Active Substance: INFLIXIMAB
     Indication: PSORIASIS
     Route: 042
     Dates: start: 20090730
  2. REMICADE [Suspect]
     Active Substance: INFLIXIMAB
     Dosage: 4TH INFUSION
     Route: 042
     Dates: start: 20091105

REACTIONS (3)
  - Alveolitis [Not Recovered/Not Resolved]
  - Pleural effusion [Unknown]
  - Interstitial lung disease [Recovered/Resolved]

NARRATIVE: CASE EVENT DATE: 200911
